FAERS Safety Report 12355151 (Version 2)
Quarter: 2016Q4

REPORT INFORMATION
  Report Type: Spontaneous
  Country: US (occurrence: US)
  Receive Date: 20160511
  Receipt Date: 20161228
  Transmission Date: 20170207
  Serious: No
  Sender: FDA-Public Use
  Company Number: US-CELGENEUS-USA-2016050297

PATIENT
  Age: 54 Year
  Sex: Female

DRUGS (1)
  1. OTEZLA [Suspect]
     Active Substance: APREMILAST
     Indication: PSORIASIS
     Dosage: 60MG
     Route: 048
     Dates: start: 201601, end: 201604

REACTIONS (3)
  - Peripheral swelling [Recovered/Resolved]
  - Abdominal discomfort [Recovered/Resolved]
  - Blood iron decreased [Recovered/Resolved]

NARRATIVE: CASE EVENT DATE: 201601
